FAERS Safety Report 7481204-0 (Version None)
Quarter: 2011Q2

REPORT INFORMATION
  Report Type: 
  Country: None (occurrence: None)
  Receive Date: 20110516
  Receipt Date: 20110502
  Transmission Date: 20111010
  Serious: Yes (Hospitalization, Other)
  Sender: FDA-Public Use
  Company Number: US-ELI_LILLY_AND_COMPANY-US201011004596

PATIENT
  Age: 76 Year
  Sex: Female
  Weight: 47.619 kg

DRUGS (2)
  1. FORTEO [Suspect]
     Dates: end: 20110101
  2. KEPPRA [Suspect]
     Indication: PARTIAL SEIZURES
     Dosage: UNK, UNKNOWN
     Route: 065

REACTIONS (4)
  - PARTIAL SEIZURES [None]
  - HEAD INJURY [None]
  - SUBDURAL HAEMATOMA [None]
  - HYPERCALCAEMIA [None]
